FAERS Safety Report 7081130-5 (Version None)
Quarter: 2010Q4

REPORT INFORMATION
  Report Type: 
  Country: None (occurrence: None)
  Receive Date: 20101103
  Receipt Date: 20101027
  Transmission Date: 20110411
  Serious: Yes (Other)
  Sender: FDA-Public Use
  Company Number: A0890276A

PATIENT
  Sex: Female

DRUGS (3)
  1. IMITREX [Suspect]
     Route: 065
  2. RELPAX [Suspect]
     Indication: MIGRAINE
     Route: 048
  3. PROZAC [Suspect]
     Route: 065

REACTIONS (8)
  - BACK PAIN [None]
  - CHEST DISCOMFORT [None]
  - CHEST PAIN [None]
  - FEELING COLD [None]
  - FEELING HOT [None]
  - MALAISE [None]
  - NECK PAIN [None]
  - SEROTONIN SYNDROME [None]
